FAERS Safety Report 26065810 (Version 1)
Quarter: 2025Q4

REPORT INFORMATION
  Report Type: Spontaneous
  Country: EU (occurrence: EU)
  Receive Date: 20251119
  Receipt Date: 20251119
  Transmission Date: 20260119
  Serious: Yes (Other)
  Sender: MYLAN
  Company Number: EU-EMB-M202406034-1

PATIENT
  Sex: Female
  Weight: 90 kg

DRUGS (4)
  1. CANDESARTAN [Suspect]
     Active Substance: CANDESARTAN
     Indication: Renal hypertension
     Dosage: 32 MILLIGRAM, QD
     Dates: start: 202310, end: 202405
  2. ENOXAPARIN SODIUM [Concomitant]
     Active Substance: ENOXAPARIN SODIUM
     Indication: Factor V Leiden mutation
     Dosage: 4000 INTERNATIONAL UNIT, QD
  3. Cariban [Concomitant]
     Indication: Morning sickness
     Dosage: EXACT EXPOSURE DATES UNKNOWN
  4. CLOTRIMAZOLE [Concomitant]
     Active Substance: CLOTRIMAZOLE
     Indication: Vulvovaginal mycotic infection
     Dosage: UNKNOWN TRIMESTER

REACTIONS (3)
  - Oligohydramnios [Recovered/Resolved]
  - Contraindicated product administered [Recovered/Resolved]
  - Exposure during pregnancy [Unknown]

NARRATIVE: CASE EVENT DATE: 20231001
